FAERS Safety Report 14919188 (Version 5)
Quarter: 2018Q3

REPORT INFORMATION
  Report Type: Report from Study
  Country: CA (occurrence: CA)
  Receive Date: 20180521
  Receipt Date: 20180730
  Transmission Date: 20181010
  Serious: Yes (Hospitalization, Other)
  Sender: FDA-Public Use
  Company Number: CA-BRISTOL-MYERS SQUIBB COMPANY-BMS-2018-044415

PATIENT
  Age: 73 Year
  Sex: Female
  Weight: 65.1 kg

DRUGS (9)
  1. APIXABAN [Suspect]
     Active Substance: APIXABAN
     Indication: THROMBOSIS PROPHYLAXIS
     Dosage: 2.5 MG, BID
     Route: 048
     Dates: start: 201710
  2. SUNITINIB MALATE. [Suspect]
     Active Substance: SUNITINIB MALATE
     Indication: PRODUCT USED FOR UNKNOWN INDICATION
     Dosage: 37.5 MG, UNK
     Route: 065
     Dates: start: 20180517, end: 20180518
  3. IMODIUM [Concomitant]
     Active Substance: LOPERAMIDE HYDROCHLORIDE
     Indication: DIARRHOEA
     Dosage: UNK, PRN
     Route: 048
     Dates: start: 20180111
  4. NEXIUM [Concomitant]
     Active Substance: ESOMEPRAZOLE MAGNESIUM
     Indication: GASTROOESOPHAGEAL REFLUX DISEASE
     Dosage: 40 MG, DAILY
     Route: 048
     Dates: start: 20180402
  5. CANNABIDIOL [Concomitant]
     Active Substance: CANNABIDIOL
     Indication: SUPPLEMENTATION THERAPY
     Dosage: 1 G, PRN
     Route: 048
     Dates: start: 20180308
  6. SERTRALINE [Concomitant]
     Active Substance: SERTRALINE HYDROCHLORIDE
     Indication: DEPRESSION
     Dosage: 50 MG, UNK
     Route: 048
     Dates: start: 2015
  7. AMLODIPINE [Concomitant]
     Active Substance: AMLODIPINE BESYLATE
     Indication: HYPERTENSION
     Dosage: 7.5 MG, DAILY
     Route: 048
     Dates: start: 20180220
  8. SUNITINIB MALATE. [Suspect]
     Active Substance: SUNITINIB MALATE
     Indication: RENAL CELL CARCINOMA
     Dosage: 50 MG, QD
     Route: 048
     Dates: start: 20171116, end: 20180502
  9. MELATONIN [Concomitant]
     Active Substance: MELATONIN
     Indication: SEDATION
     Dosage: 3 MG, QHS
     Route: 048
     Dates: start: 20180308

REACTIONS (5)
  - Small intestinal obstruction [Unknown]
  - Anaemia [Recovered/Resolved]
  - Disease progression [Unknown]
  - Gastritis [Unknown]
  - Musculoskeletal pain [Unknown]

NARRATIVE: CASE EVENT DATE: 20180322
